FAERS Safety Report 20086797 (Version 6)
Quarter: 2024Q1

REPORT INFORMATION
  Report Type: Other
  Country: JP (occurrence: JP)
  Receive Date: 20211118
  Receipt Date: 20240326
  Transmission Date: 20240409
  Serious: Yes (Hospitalization, Other)
  Sender: FDA-Public Use
  Company Number: JP-CHUGAI-2021022773AA

PATIENT
  Age: 66 Year
  Sex: Female
  Weight: 75 kg

DRUGS (5)
  1. ENSPRYNG [Suspect]
     Active Substance: SATRALIZUMAB-MWGE
     Indication: Neuromyelitis optica spectrum disorder
     Route: 058
     Dates: start: 20210113
  2. ENSPRYNG [Suspect]
     Active Substance: SATRALIZUMAB-MWGE
     Route: 058
     Dates: start: 20211102
  3. PREDONINE [Suspect]
     Active Substance: PREDNISOLONE
     Indication: Neuromyelitis optica spectrum disorder
     Route: 048
     Dates: start: 20210113
  4. PREDONINE [Suspect]
     Active Substance: PREDNISOLONE
     Route: 065
  5. PREDONINE [Suspect]
     Active Substance: PREDNISOLONE
     Route: 065

REACTIONS (15)
  - Lumbar vertebral fracture [Recovered/Resolved]
  - Large intestine polyp [Recovered/Resolved]
  - Ankle fracture [Recovered/Resolved]
  - Hypokalaemia [Recovered/Resolved]
  - Iron deficiency anaemia [Recovered/Resolved]
  - Deep vein thrombosis [Recovering/Resolving]
  - Fracture [Not Recovered/Not Resolved]
  - Urinary tract infection [Recovered/Resolved]
  - Hypernatraemia [Recovered/Resolved]
  - Blood creatine phosphokinase decreased [Recovered/Resolved]
  - Hypercreatininaemia [Not Recovered/Not Resolved]
  - Hepatic function abnormal [Recovered/Resolved]
  - Dyslipidaemia [Not Recovered/Not Resolved]
  - Off label use [Unknown]
  - Tibia fracture [Recovered/Resolved]

NARRATIVE: CASE EVENT DATE: 20210120
